FAERS Safety Report 4963319-1 (Version None)
Quarter: 2006Q2

REPORT INFORMATION
  Report Type: 
  Country: None (occurrence: None)
  Receive Date: 20060404
  Receipt Date: 20060404
  Transmission Date: 20061013
  Serious: Yes (Death)
  Sender: FDA-Public Use
  Company Number: None

PATIENT
  Age: 72 Year
  Sex: Female
  Weight: 77.5651 kg

DRUGS (8)
  1. OXALIPLATIN [Suspect]
     Indication: GASTRIC CANCER RECURRENT
     Dosage: 85 MG/M2   DAY1, Q 2 WEEKS   IV
     Route: 042
     Dates: start: 20060118
  2. OXALIPLATIN [Suspect]
     Indication: GASTRIC CANCER RECURRENT
     Dosage: 85 MG/M2   DAY1, Q 2 WEEKS   IV
     Route: 042
     Dates: start: 20060201
  3. OXALIPLATIN [Suspect]
     Indication: GASTRIC CANCER RECURRENT
     Dosage: 85 MG/M2   DAY1, Q 2 WEEKS   IV
     Route: 042
     Dates: start: 20060222
  4. OXALIPLATIN [Suspect]
     Indication: GASTRIC CANCER RECURRENT
     Dosage: 85 MG/M2   DAY1, Q 2 WEEKS   IV
     Route: 042
     Dates: start: 20060308
  5. CAPECITABINE [Suspect]
     Indication: GASTRIC CANCER RECURRENT
     Dosage: 850 MG/M2   DAYS 1-7, Q 2 WK   PO
     Route: 048
     Dates: start: 20060118
  6. CAPECITABINE [Suspect]
     Indication: GASTRIC CANCER RECURRENT
     Dosage: 850 MG/M2   DAYS 1-7, Q 2 WK   PO
     Route: 048
     Dates: start: 20060201
  7. CAPECITABINE [Suspect]
     Indication: GASTRIC CANCER RECURRENT
     Dosage: 850 MG/M2   DAYS 1-7, Q 2 WK   PO
     Route: 048
     Dates: start: 20060222
  8. CAPECITABINE [Suspect]
     Indication: GASTRIC CANCER RECURRENT
     Dosage: 850 MG/M2   DAYS 1-7, Q 2 WK   PO
     Route: 048
     Dates: start: 20060308

REACTIONS (9)
  - ACUTE MYOCARDIAL INFARCTION [None]
  - CHEST DISCOMFORT [None]
  - DYSPNOEA [None]
  - GENERAL PHYSICAL HEALTH DETERIORATION [None]
  - HYPOTENSION [None]
  - PALPITATIONS [None]
  - RENAL FAILURE ACUTE [None]
  - RESPIRATORY FAILURE [None]
  - SUPRAVENTRICULAR TACHYCARDIA [None]
